FAERS Safety Report 10066240 (Version 3)
Quarter: 2014Q2

REPORT INFORMATION
  Report Type: Spontaneous
  Country: US (occurrence: US)
  Receive Date: 20140408
  Receipt Date: 20140613
  Transmission Date: 20141212
  Serious: Yes (Life-Threatening, Disabling)
  Sender: FDA-Public Use
  Company Number: US-JNJFOC-20140401774

PATIENT
  Age: 80 Year
  Sex: Male
  Weight: 90.27 kg

DRUGS (20)
  1. XARELTO [Suspect]
     Indication: THROMBOSIS PROPHYLAXIS
     Route: 048
  2. XARELTO [Suspect]
     Indication: KNEE ARTHROPLASTY
     Route: 048
  3. CALCIUM [Concomitant]
     Route: 048
  4. CALCIUM [Concomitant]
     Dosage: 500 (UNSPECIFIED UNITS)
     Route: 048
     Dates: start: 20080529
  5. COZAAR [Concomitant]
     Route: 048
  6. ASPIRIN [Concomitant]
     Route: 048
  7. PRAMIPEXOLE DIHYDROCHLORIDE [Concomitant]
     Indication: RESTLESS LEGS SYNDROME
     Dosage: 1.2 TABLET EVERY NIGHT AT BEDTIME (QHS)
     Route: 048
     Dates: start: 20100222
  8. PRAMIPEXOLE DIHYDROCHLORIDE [Concomitant]
     Indication: RESTLESS LEGS SYNDROME
     Route: 048
  9. METOPROLOL SUCCINATE [Concomitant]
     Dosage: 1/2 TABLET EVERY 12 HOURS
     Route: 065
  10. TAMSULOSIN HCL [Concomitant]
     Dosage: AT BED TIME
     Route: 048
  11. TAMSULOSIN HCL [Concomitant]
     Route: 048
  12. TRIAZOLAM [Concomitant]
     Route: 048
  13. TRIAZOLAM [Concomitant]
     Dosage: HALF TABLET AT BED TIME
     Route: 048
     Dates: start: 20090702
  14. AMITRIPTYLINE [Concomitant]
     Route: 065
  15. SAW  PALMETTO [Concomitant]
     Route: 065
  16. MVI [Concomitant]
     Route: 048
  17. AMITRIPTYLINE HCL [Concomitant]
     Dosage: AT MED TIME
     Route: 048
     Dates: start: 20050525
  18. LOSARTAN POTASSIUM [Concomitant]
     Route: 048
     Dates: start: 20100405
  19. METOPROLOL SUCCINATE [Concomitant]
     Dosage: 0.5 MG TWICW DAILY
     Route: 048
     Dates: start: 20070707
  20. MULTIVITAMINS [Concomitant]
     Route: 048
     Dates: start: 20080529

REACTIONS (1)
  - Deep vein thrombosis [Recovered/Resolved with Sequelae]
